FAERS Safety Report 4874164-X (Version None)
Quarter: 2006Q1

REPORT INFORMATION
  Report Type: 
  Country: None (occurrence: None)
  Receive Date: 20060106
  Receipt Date: 20060103
  Transmission Date: 20060701
  Serious: Yes (Death, Hospitalization)
  Sender: FDA-Public Use
  Company Number: FR-GLAXOSMITHKLINE-B0405283A

PATIENT
  Age: 66 Year
  Sex: Male

DRUGS (3)
  1. ZINNAT [Suspect]
     Route: 048
     Dates: start: 20051011, end: 20051023
  2. TRIFLUCAN [Suspect]
     Indication: ORAL CANDIDIASIS
     Route: 048
  3. TAVANIC [Suspect]
     Route: 048
     Dates: start: 20051011, end: 20051019

REACTIONS (6)
  - CEREBRAL HAEMORRHAGE [None]
  - EPISTAXIS [None]
  - HAEMATEMESIS [None]
  - HAEMOPTYSIS [None]
  - PURPURA [None]
  - THROMBOCYTOPENIA [None]
